FAERS Safety Report 8949559 (Version 3)
Quarter: 2014Q1

REPORT INFORMATION
  Report Type: Spontaneous
  Country: US (occurrence: US)
  Receive Date: 20121206
  Receipt Date: 20140303
  Transmission Date: 20141002
  Serious: Yes (Hospitalization)
  Sender: FDA-Public Use
  Company Number: US-MILLENNIUM PHARMACEUTICALS, INC.-2012-08526

PATIENT
  Age: 51 Year
  Sex: Male
  Weight: 242.18 kg

DRUGS (4)
  1. VELCADE [Suspect]
     Indication: PLASMA CELL MYELOMA
     Dosage: 3.5 MG, UNK
     Route: 040
     Dates: start: 20110329, end: 20120103
  2. VELCADE [Suspect]
     Dosage: 3.5 MG, 1/WEEK
     Route: 058
     Dates: start: 20120103, end: 20120103
  3. DECADRON [Suspect]
     Indication: PLASMA CELL MYELOMA
     Dosage: 40 MG, 1/WEEK
     Route: 048
     Dates: start: 20120103, end: 20120103
  4. CYTOXAN [Suspect]
     Indication: PLASMA CELL MYELOMA
     Dosage: 900 MG, 1/WEEK
     Route: 042
     Dates: start: 20120103, end: 20120103

REACTIONS (1)
  - Angina pectoris [Recovered/Resolved]
